FAERS Safety Report 23172046 (Version 1)
Quarter: 2023Q4

REPORT INFORMATION
  Report Type: Spontaneous
  Country: US (occurrence: None)
  Receive Date: 20231110
  Receipt Date: 20231110
  Transmission Date: 20240110
  Serious: Yes (Hospitalization)
  Sender: FDA-Public Use
  Company Number: US-FARMAPROD-202310-3205

PATIENT
  Age: 78 Year
  Sex: Female
  Weight: 55.842 kg

DRUGS (17)
  1. OXERVATE [Suspect]
     Active Substance: CENEGERMIN-BKBJ
     Indication: Neurotrophic keratopathy
     Route: 047
     Dates: start: 20231004
  2. AMLODIPINE BESYLATE [Concomitant]
     Active Substance: AMLODIPINE BESYLATE
  3. ALBUTEROL SULFATE [Concomitant]
     Active Substance: ALBUTEROL SULFATE
     Dosage: HYDROFLUOROALKANE, AEROSOL WITH ADAPTER.
  4. FAMOTIDINE [Concomitant]
     Active Substance: FAMOTIDINE
  5. SIMVASTATIN [Concomitant]
     Active Substance: SIMVASTATIN
  6. FLUTICASONE PROPIONATE [Concomitant]
     Active Substance: FLUTICASONE PROPIONATE
     Dosage: SUSPENSION.
  7. CETIRIZINE HCL [Concomitant]
     Active Substance: CETIRIZINE HYDROCHLORIDE
  8. SOTALOL [Concomitant]
     Active Substance: SOTALOL
  9. TETRACYCLINE HYDROCHLORIDE [Concomitant]
     Active Substance: TETRACYCLINE HYDROCHLORIDE
  10. PANTOPRAZOLE SODIUM [Concomitant]
     Active Substance: PANTOPRAZOLE SODIUM
  11. METRONIDAZOLE [Concomitant]
     Active Substance: METRONIDAZOLE
  12. BISMUTH SUBSALICYLATE [Concomitant]
     Active Substance: BISMUTH SUBSALICYLATE
  13. OFLOXACIN [Concomitant]
     Active Substance: OFLOXACIN
  14. BENZONATATE [Concomitant]
     Active Substance: BENZONATATE
  15. AMOXICILLIN [Concomitant]
     Active Substance: AMOXICILLIN
  16. ASPIRIN [Concomitant]
     Active Substance: ASPIRIN
  17. BREO ELLIPTA [Concomitant]
     Active Substance: FLUTICASONE FUROATE\VILANTEROL TRIFENATATE
     Dosage: 200-25 MICROGRAMS, BLISTER WITH ADAPTER.

REACTIONS (4)
  - Fall [Unknown]
  - Craniofacial fracture [Unknown]
  - Eye contusion [Unknown]
  - Eye swelling [Unknown]

NARRATIVE: CASE EVENT DATE: 20231029
